FAERS Safety Report 21298121 (Version 1)
Quarter: 2022Q3

REPORT INFORMATION
  Report Type: Spontaneous
  Country: GB (occurrence: GB)
  Receive Date: 20220906
  Receipt Date: 20220906
  Transmission Date: 20221026
  Serious: Yes (Life-Threatening, Other)
  Sender: FDA-Public Use
  Company Number: GB-MHRA-MED-202209011559306610-FRGKW

PATIENT
  Age: 72 Year
  Sex: Female
  Weight: 70 kg

DRUGS (1)
  1. ROCURONIUM [Suspect]
     Active Substance: ROCURONIUM BROMIDE
     Indication: General anaesthesia
     Dosage: 360 MILLIGRAM
     Route: 065
     Dates: end: 20220530

REACTIONS (1)
  - Recurrence of neuromuscular blockade [Recovered/Resolved]

NARRATIVE: CASE EVENT DATE: 20220530
